FAERS Safety Report 23128751 (Version 1)
Quarter: 2023Q4

REPORT INFORMATION
  Report Type: Spontaneous
  Country: NP (occurrence: NP)
  Receive Date: 20231031
  Receipt Date: 20231031
  Transmission Date: 20240110
  Serious: Yes (Hospitalization, Other)
  Sender: FDA-Public Use
  Company Number: NP-WOCKHARDT LIMITED-2023WLD000112

PATIENT
  Age: 60 Year
  Sex: Female

DRUGS (2)
  1. FUROSEMIDE [Suspect]
     Active Substance: FUROSEMIDE
     Indication: Swelling face
     Dosage: UNK
     Route: 065
  2. FUROSEMIDE [Suspect]
     Active Substance: FUROSEMIDE
     Indication: Oedema peripheral

REACTIONS (3)
  - Acute kidney injury [Recovering/Resolving]
  - Metabolic acidosis [Unknown]
  - Toxic epidermal necrolysis [Recovered/Resolved]
